FAERS Safety Report 23649686 (Version 1)
Quarter: 2024Q1

REPORT INFORMATION
  Report Type: Other
  Country: US (occurrence: US)
  Receive Date: 20240319
  Receipt Date: 20240319
  Transmission Date: 20240409
  Serious: Yes (Hospitalization, Other)
  Sender: FDA-Public Use
  Company Number: US-HLS-202400080

PATIENT
  Age: 66 Year
  Sex: Male

DRUGS (2)
  1. CLOZAPINE [Suspect]
     Active Substance: CLOZAPINE
     Indication: Schizophrenia
     Dosage: CLOZAPINE WAS ON HOLD. CLOZAPINE WAS RESTARTED AND TITRATED TO THE PATIENT^S ORIGINAL DOSE.
     Route: 065
  2. LORAZEPAM [Concomitant]
     Active Substance: LORAZEPAM
     Indication: Product used for unknown indication
     Route: 065

REACTIONS (5)
  - Psychiatric decompensation [Unknown]
  - Focal dyscognitive seizures [Unknown]
  - Delirium [Unknown]
  - Seizure [Unknown]
  - Catatonia [Unknown]
